FAERS Safety Report 5262305-4 (Version None)
Quarter: 2007Q1

REPORT INFORMATION
  Report Type: 
  Country: None (occurrence: None)
  Receive Date: 20070308
  Receipt Date: 20070222
  Transmission Date: 20070707
  Serious: Yes (Other)
  Sender: FDA-Public Use
  Company Number: 2007RR-05897

PATIENT
  Age: 77 Year
  Sex: Female

DRUGS (1)
  1. CLARITHROMYCIN [Suspect]
     Indication: LOWER RESPIRATORY TRACT INFECTION
     Dosage: 500 MG, BID, INTRAVENOUS
     Route: 042
     Dates: start: 20070130, end: 20070202

REACTIONS (1)
  - SUPRAVENTRICULAR TACHYCARDIA [None]
